FAERS Safety Report 9292282 (Version 1)
Quarter: 2013Q2

REPORT INFORMATION
  Report Type: Spontaneous
  Country: CH (occurrence: CH)
  Receive Date: 20130516
  Receipt Date: 20130516
  Transmission Date: 20140414
  Serious: Yes (Hospitalization)
  Sender: FDA-Public Use
  Company Number: PHHY2013CH047517

PATIENT
  Age: 69 Year
  Sex: Female

DRUGS (8)
  1. SINTROM [Suspect]
     Indication: ATRIAL FIBRILLATION
     Route: 048
     Dates: start: 20120807, end: 20130322
  2. LESCOL [Interacting]
     Indication: HYPERCHOLESTEROLAEMIA
     Dosage: 80 MG, QD
     Route: 048
  3. DAFALGAN [Interacting]
     Indication: BACK PAIN
     Dosage: 1000 MG, TID
     Route: 048
  4. ARIXTRA [Interacting]
     Indication: THROMBOSIS PROPHYLAXIS
     Dosage: 2.5 MG, QD
     Route: 058
  5. DILZEM [Concomitant]
     Indication: ESSENTIAL HYPERTENSION
     Dosage: 120 MG, BID
     Route: 048
  6. ENALAPRIL [Concomitant]
     Indication: ESSENTIAL HYPERTENSION
     Dosage: 2.5 MG, QD
     Route: 048
  7. TOREM [Concomitant]
     Indication: OEDEMA PERIPHERAL
     Dosage: 5 MG, QD
     Route: 048
  8. ANXIOLIT [Concomitant]
     Indication: ANXIETY DISORDER
     Dosage: 7.5 MG, QD
     Route: 048

REACTIONS (4)
  - Renal failure acute [Recovered/Resolved]
  - Hypotension [Recovered/Resolved]
  - Haematoma [Recovered/Resolved]
  - Coagulation time prolonged [Recovered/Resolved]
